FAERS Safety Report 8263861-4 (Version None)
Quarter: 2012Q2

REPORT INFORMATION
  Report Type: 
  Country: None (occurrence: None)
  Receive Date: 20120405
  Receipt Date: 20120403
  Transmission Date: 20120825
  Serious: Yes (Life-Threatening, Hospitalization)
  Sender: FDA-Public Use
  Company Number: NL-MERCK-1204NLD00004

PATIENT
  Age: 81 Year
  Sex: Female
  Weight: 67 kg

DRUGS (8)
  1. CARBASPIRIN CALCIUM [Concomitant]
     Route: 048
     Dates: start: 20090101
  2. HYDROCHLOROTHIAZIDE [Concomitant]
     Route: 048
  3. FLUTICASONE PROPIONATE AND SALMETEROL XINAFOATE [Concomitant]
     Route: 055
  4. COZAAR [Suspect]
     Indication: HYPERTENSION
     Route: 048
     Dates: start: 20120315, end: 20120319
  5. DIPYRIDAMOLE [Concomitant]
     Route: 048
  6. LACTULOSE [Concomitant]
     Route: 065
  7. METOPROLOL [Concomitant]
     Route: 048
  8. RANITIDINE [Concomitant]
     Route: 048
     Dates: start: 20070101

REACTIONS (1)
  - PANCREATITIS ACUTE [None]
